FAERS Safety Report 8206148-8 (Version None)
Quarter: 2012Q1

REPORT INFORMATION
  Report Type: 
  Country: None (occurrence: None)
  Receive Date: 20120313
  Receipt Date: 20120306
  Transmission Date: 20120608
  Serious: Yes (Hospitalization)
  Sender: FDA-Public Use
  Company Number: AU-ELI_LILLY_AND_COMPANY-AU201202004035

PATIENT
  Sex: Male
  Weight: 74 kg

DRUGS (5)
  1. BYETTA [Suspect]
     Dosage: 10 UG, BID
     Route: 058
     Dates: end: 20110701
  2. AMLO                               /00972402/ [Concomitant]
     Dosage: 10 MG, QD
  3. IRBESARTAN + HYDROCHLOROTHIAZIDE [Concomitant]
     Dosage: 2 DF, QD
  4. IBILEX [Concomitant]
     Dosage: 500 MG, TID
  5. BYETTA [Suspect]
     Indication: TYPE 2 DIABETES MELLITUS
     Dosage: 5 UG, BID
     Route: 058

REACTIONS (4)
  - VOMITING [None]
  - DIARRHOEA [None]
  - RETCHING [None]
  - ABDOMINAL PAIN [None]
